FAERS Safety Report 22308126 (Version 2)
Quarter: 2023Q2

REPORT INFORMATION
  Report Type: Spontaneous
  Country: JP (occurrence: JP)
  Receive Date: 20230511
  Receipt Date: 20230523
  Transmission Date: 20230721
  Serious: Yes (Death, Other)
  Sender: FDA-Public Use
  Company Number: JP-UCBJ-CD202305011UCBPHAPROD

PATIENT
  Age: 85 Year
  Sex: Female

DRUGS (4)
  1. VIMPAT [Suspect]
     Active Substance: LACOSAMIDE
     Indication: Off label use
     Dosage: UNK
     Route: 048
  2. VIMPAT [Suspect]
     Active Substance: LACOSAMIDE
     Indication: Myoclonic epilepsy
     Dosage: 100 MILLIGRAM, 2X/DAY (BID)
     Route: 041
  3. DIAZEPAM [Concomitant]
     Active Substance: DIAZEPAM
     Indication: Myoclonus
     Dosage: UNK
     Route: 042
  4. DIAZEPAM [Concomitant]
     Active Substance: DIAZEPAM
     Dosage: 10 MILLIGRAM, ONCE DAILY (QD)
     Route: 042

REACTIONS (4)
  - Pneumonia aspiration [Fatal]
  - Altered state of consciousness [Unknown]
  - Drug ineffective [Unknown]
  - Off label use [Unknown]
